FAERS Safety Report 12759912 (Version 1)
Quarter: 2016Q3

REPORT INFORMATION
  Report Type: Spontaneous
  Country: TR (occurrence: TR)
  Receive Date: 20160919
  Receipt Date: 20160919
  Transmission Date: 20161109
  Serious: Yes (Hospitalization)
  Sender: FDA-Public Use
  Company Number: TR-UNICHEM LABORATORIES LIMITED-UCM201609-000206

PATIENT
  Age: 26 Year
  Sex: Female

DRUGS (4)
  1. LORAZEPAM. [Suspect]
     Active Substance: LORAZEPAM
     Indication: ANXIOLYTIC THERAPY
     Route: 048
  2. DIVALPROEX SODIUM. [Suspect]
     Active Substance: DIVALPROEX SODIUM
     Indication: HYPOMANIA
  3. HALOPERIDOL. [Concomitant]
     Active Substance: HALOPERIDOL
  4. BIPERIDEN [Concomitant]
     Active Substance: BIPERIDEN

REACTIONS (2)
  - Stupor [Recovered/Resolved]
  - Drug interaction [Unknown]
